FAERS Safety Report 4996649-8 (Version None)
Quarter: 2006Q2

REPORT INFORMATION
  Report Type: 
  Country: None (occurrence: None)
  Receive Date: 20060505
  Receipt Date: 20060426
  Transmission Date: 20061013
  Serious: Yes (Other)
  Sender: FDA-Public Use
  Company Number: 2006051328

PATIENT
  Age: 49 Year
  Sex: Female
  Weight: 59.8748 kg

DRUGS (14)
  1. LYRICA [Suspect]
     Indication: NEURALGIA
     Dosage: 150 MG (75 MG, 2 IN 1 D), ORAL
     Route: 048
     Dates: start: 20060405
  2. LITHIUM (LITHIUM) [Suspect]
     Indication: BIPOLAR DISORDER
  3. ATIVAN [Suspect]
     Indication: ILL-DEFINED DISORDER
  4. SEROQUEL [Suspect]
     Indication: BIPOLAR DISORDER
     Dosage: 25 MG (25 MG, 1 IN 1 D)
     Dates: start: 20060101
  5. WARFARIN SODIUM [Concomitant]
  6. SYNTHROID [Concomitant]
  7. PACLITAXEL [Concomitant]
  8. ZOMETA [Concomitant]
  9. OXYCONTIN [Concomitant]
  10. DILAUDID [Concomitant]
  11. ALL OTHER THERAPEUTIC PRODUCTS (ALL  OTHER THERAPEUTIC PRODUCTS) [Concomitant]
  12. FLEXERIL [Concomitant]
  13. CLONIDINE [Concomitant]
  14. MORPHINE [Concomitant]

REACTIONS (11)
  - BLOOD CALCIUM INCREASED [None]
  - CONFUSIONAL STATE [None]
  - DISTURBANCE IN ATTENTION [None]
  - DIZZINESS [None]
  - DRUG INTERACTION [None]
  - DYSARTHRIA [None]
  - MIDDLE INSOMNIA [None]
  - PANIC ATTACK [None]
  - SOMNOLENCE [None]
  - THERAPEUTIC AGENT TOXICITY [None]
  - TREATMENT NONCOMPLIANCE [None]
